FAERS Safety Report 6435997-1 (Version None)
Quarter: 2009Q4

REPORT INFORMATION
  Report Type: 
  Country: None (occurrence: None)
  Receive Date: 20091111
  Receipt Date: 20091103
  Transmission Date: 20100525
  Serious: Yes (Other)
  Sender: FDA-Public Use
  Company Number: US-JNJFOC-20091101229

PATIENT
  Age: 81 Year
  Sex: Male
  Weight: 90.72 kg

DRUGS (10)
  1. EXTRA STRENGTH TYLENOL [Suspect]
  2. EXTRA STRENGTH TYLENOL [Suspect]
     Indication: ARTHRALGIA
     Dosage: 1000 MG, 1-2 TIMES DAILY FOR 2 WEEKS
  3. CLONIDINE [Concomitant]
     Indication: HYPERTENSION
  4. MAXZIDE [Concomitant]
     Indication: HYPERTENSION
  5. LIPITOR [Concomitant]
     Indication: BLOOD CHOLESTEROL INCREASED
  6. MULTI-VITAMINS [Concomitant]
     Indication: VITAMIN SUPPLEMENTATION
  7. POTASSIUM CHLORIDE [Concomitant]
     Indication: MEDICAL DIET
  8. FOLIC ACID [Concomitant]
     Indication: MEDICAL DIET
  9. FISH OIL [Concomitant]
     Indication: VITAMIN SUPPLEMENTATION
  10. VITAMIN B6 [Concomitant]
     Indication: VITAMIN SUPPLEMENTATION

REACTIONS (1)
  - HYPERTENSION [None]
